FAERS Safety Report 14912436 (Version 2)
Quarter: 2018Q2

REPORT INFORMATION
  Report Type: Spontaneous
  Country: GB (occurrence: GB)
  Receive Date: 20180518
  Receipt Date: 20180615
  Transmission Date: 20180711
  Serious: Yes (Hospitalization, Other)
  Sender: FDA-Public Use
  Company Number: GB-ASTELLAS-2018US022683

PATIENT
  Age: 59 Year
  Sex: Male

DRUGS (1)
  1. TACROLIMUS. [Suspect]
     Active Substance: TACROLIMUS
     Indication: LIVER TRANSPLANT
     Dosage: UNK, UNKNOWN FREQ.
     Route: 065

REACTIONS (10)
  - Portal hypertension [Recovered/Resolved]
  - Liver function test abnormal [Recovered/Resolved]
  - Coeliac artery stenosis [Recovered/Resolved]
  - Biliary dilatation [Recovered/Resolved]
  - Biliary tract disorder [Recovered/Resolved]
  - Arteriovenous fistula [Recovered/Resolved]
  - Aspartate aminotransferase increased [Recovered/Resolved]
  - Bile duct stenosis [Recovered/Resolved]
  - Ascites [Recovered/Resolved]
  - Hepatic steatosis [Recovered/Resolved]
